FAERS Safety Report 8791079 (Version 2)
Quarter: 2013Q1

REPORT INFORMATION
  Report Type: Spontaneous
  Country: US (occurrence: None)
  Receive Date: 20120910
  Receipt Date: 20121128
  Transmission Date: 20140127
  Serious: Yes (Hospitalization)
  Sender: FDA-Public Use
  Company Number: GAM-177-12-US

PATIENT
  Age: 66 Year
  Sex: Male

DRUGS (16)
  1. IMMUNE GLOBULIN NOS [Suspect]
     Indication: CHRONIC INFLAMMATORY DEMYELINATING POLYRADICULONEUROPATHY
     Dosage: QDX4
     Route: 042
     Dates: start: 20120720
  2. FOLIC ACID [Concomitant]
  3. METOPROLOL [Concomitant]
  4. TAMSULOSIN [Concomitant]
  5. PREGABALIN [Concomitant]
  6. METHOTREXATE [Concomitant]
  7. ACETYLSALICYLIC ACID [Concomitant]
  8. HYDROCHLOROTHIAZIDE AND TRIAMTERENE [Concomitant]
  9. AMITRIPTYLINE [Concomitant]
  10. LEVOTHYROXINE [Concomitant]
  11. NEVIRAPINE [Concomitant]
  12. ATORVASTATIN [Concomitant]
  13. CELECOXIB [Concomitant]
  14. SALBUTAMOL [Concomitant]
  15. RALTEGRAVIR [Concomitant]
  16. WARFARIN [Concomitant]

REACTIONS (2)
  - Dyspnoea [None]
  - Pulmonary embolism [None]
